FAERS Safety Report 6811777-X (Version None)
Quarter: 2010Q3

REPORT INFORMATION
  Report Type: 
  Country: None (occurrence: None)
  Receive Date: 20100701
  Receipt Date: 20100511
  Transmission Date: 20110219
  Serious: Yes (Other)
  Sender: FDA-Public Use
  Company Number: US-RANBAXY-2010US-33733

PATIENT

DRUGS (2)
  1. ISOTRETINOIN [Suspect]
     Indication: ACNE CYSTIC
     Dosage: 20 MG, UNK
     Route: 048
  2. AMNESTEEM [Suspect]
     Indication: ACNE CYSTIC
     Dosage: UNK
     Route: 048

REACTIONS (1)
  - HALLUCINATION [None]
